FAERS Safety Report 17443913 (Version 5)
Quarter: 2020Q3

REPORT INFORMATION
  Report Type: Report from Study
  Country: US (occurrence: US)
  Receive Date: 20200221
  Receipt Date: 20200829
  Transmission Date: 20201102
  Serious: Yes (Hospitalization, Other)
  Sender: FDA-Public Use
  Company Number: NVSC2020US047892

PATIENT
  Age: 67 Year
  Sex: Male

DRUGS (1)
  1. ENTRESTO [Suspect]
     Active Substance: SACUBITRIL\VALSARTAN
     Indication: CARDIAC FAILURE
     Dosage: 1 DF (24/26 MG), BID
     Route: 048
     Dates: start: 20200118

REACTIONS (13)
  - Cardiac failure [Unknown]
  - Influenza [Recovering/Resolving]
  - Musculoskeletal discomfort [Unknown]
  - Tremor [Unknown]
  - Cough [Recovering/Resolving]
  - Dyspnoea [Recovering/Resolving]
  - Weight decreased [Not Recovered/Not Resolved]
  - Peripheral swelling [Unknown]
  - Heart rate abnormal [Unknown]
  - Anxiety [Unknown]
  - Respiratory tract congestion [Recovering/Resolving]
  - Ejection fraction decreased [Not Recovered/Not Resolved]
  - Memory impairment [Unknown]

NARRATIVE: CASE EVENT DATE: 20200204
